FAERS Safety Report 11148771 (Version 3)
Quarter: 2015Q3

REPORT INFORMATION
  Report Type: Spontaneous
  Country: US (occurrence: US)
  Receive Date: 20150529
  Receipt Date: 20150722
  Transmission Date: 20151125
  Serious: No
  Sender: FDA-Public Use
  Company Number: US-PFIZER INC-2015180111

PATIENT
  Age: 53 Year
  Sex: Male

DRUGS (2)
  1. XALKORI [Suspect]
     Active Substance: CRIZOTINIB
     Indication: NON-SMALL CELL LUNG CANCER STAGE IIIA
     Dosage: 250 MG, 2X/DAY
     Route: 048
     Dates: start: 20150226, end: 20150528
  2. XALKORI [Suspect]
     Active Substance: CRIZOTINIB
     Dosage: 250 UNK, UNK

REACTIONS (4)
  - Disease progression [Unknown]
  - Nausea [Recovered/Resolved]
  - Fatigue [Recovered/Resolved]
  - Non-small cell lung cancer stage IIIA [Unknown]

NARRATIVE: CASE EVENT DATE: 2015
